FAERS Safety Report 19776470 (Version 4)
Quarter: 2022Q1

REPORT INFORMATION
  Report Type: Report from Study
  Country: CA (occurrence: CA)
  Receive Date: 20210902
  Receipt Date: 20220308
  Transmission Date: 20220423
  Serious: Yes (Other)
  Sender: FDA-Public Use
  Company Number: CA-JNJFOC-20210856266

PATIENT
  Age: 49 Year
  Sex: Female
  Weight: 57 kg

DRUGS (1)
  1. REMICADE [Suspect]
     Active Substance: INFLIXIMAB
     Indication: Uveitis
     Dosage: EXPIRY DATE: 31-MAR-2024
     Route: 042

REACTIONS (7)
  - Retinal oedema [Recovering/Resolving]
  - Trigeminal neuralgia [Recovering/Resolving]
  - Herpes zoster [Recovered/Resolved]
  - Eye pain [Recovering/Resolving]
  - Intraocular pressure increased [Unknown]
  - Off label use [Unknown]
  - Product use in unapproved indication [Unknown]

NARRATIVE: CASE EVENT DATE: 20210817
